FAERS Safety Report 15028487 (Version 1)
Quarter: 2018Q2

REPORT INFORMATION
  Report Type: Spontaneous
  Country: BR (occurrence: BR)
  Receive Date: 20180619
  Receipt Date: 20180619
  Transmission Date: 20180711
  Serious: Yes (Hospitalization, Other)
  Sender: FDA-Public Use
  Company Number: BR-GLAXOSMITHKLINE-BR2018GSK106975

PATIENT
  Sex: Female
  Weight: 14 kg

DRUGS (2)
  1. AEROLIN [Suspect]
     Active Substance: ALBUTEROL
     Indication: ASTHMATIC CRISIS
     Dosage: 6 DF, Z (APPLICATION(S))
     Route: 055
  2. SERETIDE [Suspect]
     Active Substance: FLUTICASONE PROPIONATE\SALMETEROL XINAFOATE
     Indication: ASTHMA
     Dosage: 2 DF, BID (APPLICATION(S))
     Route: 055

REACTIONS (4)
  - Prescribed overdose [Recovered/Resolved]
  - Asthmatic crisis [Unknown]
  - Drug administered to patient of inappropriate age [Unknown]
  - Off label use [Recovered/Resolved]
